FAERS Safety Report 22621251 (Version 2)
Quarter: 2023Q2

REPORT INFORMATION
  Report Type: Spontaneous
  Country: US (occurrence: US)
  Receive Date: 20230620
  Receipt Date: 20230623
  Transmission Date: 20230722
  Serious: Yes (Hospitalization)
  Sender: FDA-Public Use
  Company Number: US-PFIZER INC-202300222718

PATIENT
  Age: 17 Year
  Sex: Female

DRUGS (1)
  1. OXBRYTA [Suspect]
     Active Substance: VOXELOTOR
     Indication: Pain
     Dosage: 1500 MG, DAILY

REACTIONS (2)
  - Illness [Not Recovered/Not Resolved]
  - Pain [Not Recovered/Not Resolved]
